FAERS Safety Report 5483459-0 (Version None)
Quarter: 2007Q4

REPORT INFORMATION
  Report Type: 
  Country: None (occurrence: None)
  Receive Date: 20071012
  Receipt Date: 20071008
  Transmission Date: 20080405
  Serious: Yes (Other)
  Sender: FDA-Public Use
  Company Number: US-ASTRAZENECA-2007UW23336

PATIENT
  Sex: Female

DRUGS (2)
  1. ARIMIDEX [Suspect]
     Indication: BREAST CANCER
     Route: 048
     Dates: start: 20060101, end: 20060101
  2. ARIMIDEX [Suspect]
     Route: 048
     Dates: start: 20060101

REACTIONS (8)
  - ALOPECIA [None]
  - BIPOLAR DISORDER [None]
  - CARPAL TUNNEL SYNDROME [None]
  - INSOMNIA [None]
  - MOOD SWINGS [None]
  - PAIN [None]
  - PAIN IN EXTREMITY [None]
  - PARAESTHESIA [None]
